FAERS Safety Report 5961883-7 (Version None)
Quarter: 2008Q4

REPORT INFORMATION
  Report Type: 
  Country: None (occurrence: None)
  Receive Date: 20081121
  Receipt Date: 20080825
  Transmission Date: 20090506
  Serious: No
  Sender: FDA-Public Use
  Company Number: US-BRISTOL-MYERS SQUIBB COMPANY-14313738

PATIENT
  Age: 40 Year
  Sex: Female
  Weight: 104 kg

DRUGS (6)
  1. LISINOPRIL [Suspect]
     Indication: HYPERTENSION
     Dosage: INITIATED AT 20MG/DAY 21/2 YEARS AGO,INCREASED TO 40MG/DAY SINCE SEP/OCT-2007
     Dates: start: 20070101
  2. AVALIDE [Suspect]
     Indication: HYPERTENSION
     Dosage: 1 DOSAGE FORM = 150MG/12.5MG
  3. SKELAXIN [Concomitant]
  4. MOBIC [Concomitant]
  5. CARDIZEM CD [Concomitant]
  6. TYLENOL (CAPLET) [Concomitant]

REACTIONS (3)
  - ACNE [None]
  - ALOPECIA [None]
  - CARDIAC MURMUR [None]
